FAERS Safety Report 17715697 (Version 3)
Quarter: 2020Q2

REPORT INFORMATION
  Report Type: Report from Study
  Country: IT (occurrence: IT)
  Receive Date: 20200427
  Receipt Date: 20200528
  Transmission Date: 20200714
  Serious: Yes (Death, Hospitalization, Other)
  Sender: FDA-Public Use
  Company Number: IT-ALEXION PHARMACEUTICALS INC.-A202005677

PATIENT
  Age: 63 Year
  Sex: Male
  Weight: 60 kg

DRUGS (3)
  1. SOLIRIS [Suspect]
     Active Substance: ECULIZUMAB
     Indication: OFF LABEL USE
  2. SOLIRIS [Suspect]
     Active Substance: ECULIZUMAB
     Indication: COVID-19 TREATMENT
     Dosage: 900 MG, UNK (CYCLICAL)
     Route: 042
     Dates: start: 20200407
  3. JAKAVI [Suspect]
     Active Substance: RUXOLITINIB
     Indication: COVID-19
     Dosage: 25 MG, QD (DAY)
     Route: 048
     Dates: start: 20200407, end: 20200411

REACTIONS (5)
  - Acute respiratory distress syndrome [Fatal]
  - Off label use [Recovered/Resolved]
  - Suspected COVID-19 [Fatal]
  - COVID-19 pneumonia [Fatal]
  - Condition aggravated [Unknown]

NARRATIVE: CASE EVENT DATE: 20200407
